FAERS Safety Report 20520611 (Version 2)
Quarter: 2022Q3

REPORT INFORMATION
  Report Type: Report from Study
  Country: US (occurrence: US)
  Receive Date: 20220225
  Receipt Date: 20220919
  Transmission Date: 20221027
  Serious: Yes (Hospitalization, Other)
  Sender: FDA-Public Use
  Company Number: US-UCBSA-2022009295

PATIENT
  Age: 76 Year
  Sex: Female

DRUGS (1)
  1. ROTIGOTINE [Suspect]
     Active Substance: ROTIGOTINE
     Indication: Parkinson^s disease
     Dosage: 12 MILLIGRAM, ONCE DAILY (QD)
     Route: 062

REACTIONS (3)
  - Hip fracture [Unknown]
  - Hip surgery [Unknown]
  - Accident at home [Unknown]

NARRATIVE: CASE EVENT DATE: 20220101
